FAERS Safety Report 5301538-5 (Version None)
Quarter: 2007Q2

REPORT INFORMATION
  Report Type: 
  Country: None (occurrence: None)
  Receive Date: 20070412
  Receipt Date: 20070402
  Transmission Date: 20071010
  Serious: No
  Sender: FDA-Public Use
  Company Number: 2007-156674-NL

PATIENT
  Age: 54 Year
  Sex: Male

DRUGS (12)
  1. DEXAMETHASONE 0.5MG TAB [Suspect]
     Dosage: 4 MG ONCE, INTRAVENOUS (NOS)
     Route: 042
     Dates: start: 20070222
  2. KETOPROFEN [Suspect]
     Indication: PREMEDICATION
     Dosage: 100 MG ONCE, ORAL
     Route: 048
     Dates: start: 20070222, end: 20070222
  3. MIDAZOLAM HCL [Suspect]
     Dosage: 1 MG ONCE, INTRAVENOUS (NOS)
     Route: 042
     Dates: start: 20070222
  4. OXYGEN [Suspect]
     Dates: start: 20070222
  5. PROPOFOL [Suspect]
     Dosage: 1 DF ONCE, INTRAVENOUS (NOS)
     Route: 042
     Dates: start: 20070222
  6. RANITIDINE [Suspect]
     Dosage: ORAL
     Route: 048
     Dates: start: 20070222
  7. REMIFENTANIL [Suspect]
     Dosage: 1 DF ONCE, INTRAVENOUS (NOS)
     Route: 042
     Dates: start: 20070222
  8. TRAMADOL HCL [Suspect]
     Indication: PERIOPERATIVE ANALGESIA
     Dosage: 100 MG ONCE, INTRAVENOUS (NOS)
     Route: 042
     Dates: start: 20070222, end: 20070222
  9. CHLORPHENIRAMINE MALEATE [Concomitant]
  10. FELODIPINE [Concomitant]
  11. IBUPROFEN [Concomitant]
  12. PARACETAMOL [Concomitant]

REACTIONS (6)
  - ANAESTHETIC COMPLICATION [None]
  - DIARRHOEA [None]
  - PO2 DECREASED [None]
  - PROCEDURAL HYPOTENSION [None]
  - RESTLESSNESS [None]
  - VOMITING [None]
